FAERS Safety Report 6047616-7 (Version None)
Quarter: 2009Q1

REPORT INFORMATION
  Report Type: 
  Country: None (occurrence: None)
  Receive Date: 20090123
  Receipt Date: 20090109
  Transmission Date: 20090719
  Serious: Yes (Hospitalization, Other)
  Sender: FDA-Public Use
  Company Number: US-BAYER-US-2007-037430

PATIENT
  Age: 49 Year
  Sex: Male

DRUGS (3)
  1. BETASERON [Suspect]
     Indication: SECONDARY PROGRESSIVE MULTIPLE SCLEROSIS
     Dosage: TOTAL DAILY DOSE: 8 MIU
     Route: 058
     Dates: start: 20070620, end: 20080315
  2. BETASERON [Suspect]
     Dosage: TOTAL DAILY DOSE: 8 MIU
     Route: 058
     Dates: start: 20090108
  3. BACLOFEN [Concomitant]
     Route: 037
     Dates: start: 20070801

REACTIONS (7)
  - ASTHENIA [None]
  - CLOSTRIDIAL INFECTION [None]
  - DIARRHOEA [None]
  - DIPLEGIA [None]
  - MOBILITY DECREASED [None]
  - PYREXIA [None]
  - WEIGHT BEARING DIFFICULTY [None]
